FAERS Safety Report 8172018-7 (Version None)
Quarter: 2012Q1

REPORT INFORMATION
  Report Type: 
  Country: None (occurrence: None)
  Receive Date: 20120228
  Receipt Date: 20120221
  Transmission Date: 20120608
  Serious: Yes (Life-Threatening, Hospitalization)
  Sender: FDA-Public Use
  Company Number: GXKR2009GB10258

PATIENT
  Age: 78 Year
  Sex: Male

DRUGS (16)
  1. PROPRANOLOL [Concomitant]
  2. COTRIM [Interacting]
     Indication: PROPHYLAXIS
     Dosage: 1960 MG, QW5
     Route: 048
     Dates: start: 20090820, end: 20090909
  3. ISOSORBIDE MONONITRATE [Concomitant]
  4. LACTULOSE [Concomitant]
  5. NOVOMIX [Concomitant]
  6. NITROGLYCERIN [Concomitant]
  7. SUCRALFATE [Concomitant]
  8. RAMIPRIL [Interacting]
     Indication: MYOCARDIAL ISCHAEMIA
  9. RAMIPRIL [Suspect]
     Indication: HYPERTENSION
     Dosage: 2.5 MG, QD
     Route: 048
     Dates: end: 20090909
  10. SPIRONOLACTONE [Interacting]
     Indication: ALCOHOLIC LIVER DISEASE
     Dosage: 100 MG, QID
     Route: 048
     Dates: end: 20090909
  11. TAMSULOSIN HCL [Concomitant]
  12. THIAMINE HCL [Concomitant]
  13. COTRIM [Interacting]
     Indication: PERITONITIS BACTERIAL
  14. ALLOPURINOL [Concomitant]
  15. ASPIRIN [Concomitant]
  16. LANSOPRAZOLE [Concomitant]

REACTIONS (2)
  - HYPERKALAEMIA [None]
  - DRUG INTERACTION [None]
